FAERS Safety Report 8819011 (Version 1)
Quarter: 2012Q4

REPORT INFORMATION
  Report Type: Spontaneous
  Country: US (occurrence: None)
  Receive Date: 20121004
  Receipt Date: 20121004
  Transmission Date: 20130627
  Serious: No
  Sender: FDA-Public Use
  Company Number: None

PATIENT
  Age: 25 Year
  Sex: Female
  Weight: 60.9 kg

DRUGS (1)
  1. IOPAMIDOL [Suspect]
     Indication: CT SCAN
     Dates: start: 20120919, end: 20120919

REACTIONS (6)
  - Infusion site rash [None]
  - Infusion site pruritus [None]
  - Throat tightness [None]
  - Anxiety [None]
  - Anaphylactic reaction [None]
  - Urticaria [None]
